FAERS Safety Report 25500801 (Version 1)
Quarter: 2025Q3

REPORT INFORMATION
  Report Type: Spontaneous
  Country: US (occurrence: US)
  Receive Date: 20250701
  Receipt Date: 20250701
  Transmission Date: 20251020
  Serious: No
  Sender: ELI LILLY AND COMPANY
  Company Number: US-ELI_LILLY_AND_COMPANY-US202507000811

PATIENT
  Age: 73 Year
  Sex: Male

DRUGS (5)
  1. HUMALOG [Suspect]
     Active Substance: INSULIN LISPRO
     Indication: Product used for unknown indication
     Dosage: 22 U, DAILY (6 UNITS BEFORE BREAKFATS AND 8 UNITS BEFORE LUNCH AND DINNER)
     Route: 065
     Dates: start: 202501
  2. HUMALOG [Suspect]
     Active Substance: INSULIN LISPRO
     Indication: Product used for unknown indication
     Dosage: 22 U, DAILY (6 UNITS BEFORE BREAKFATS AND 8 UNITS BEFORE LUNCH AND DINNER)
     Route: 065
     Dates: start: 202501
  3. HUMALOG [Suspect]
     Active Substance: INSULIN LISPRO
     Dosage: 22 U, DAILY (6 UNITS BEFORE BREAKFATS AND 8 UNITS BEFORE LUNCH AND DINNER)
     Route: 065
  4. HUMALOG [Suspect]
     Active Substance: INSULIN LISPRO
     Dosage: 22 U, DAILY (6 UNITS BEFORE BREAKFATS AND 8 UNITS BEFORE LUNCH AND DINNER)
     Route: 065
  5. TOUJEO [Concomitant]
     Active Substance: INSULIN GLARGINE
     Indication: Product used for unknown indication
     Dosage: 42 U, DAILY (AT NIGHT)

REACTIONS (4)
  - Blood glucose increased [Unknown]
  - Incorrect dose administered [Unknown]
  - Product storage error [Unknown]
  - Blood glucose decreased [Unknown]
